FAERS Safety Report 14224104 (Version 2)
Quarter: 2019Q4

REPORT INFORMATION
  Report Type: Spontaneous
  Country: US (occurrence: US)
  Receive Date: 20171126
  Receipt Date: 20191016
  Transmission Date: 20200122
  Serious: No
  Sender: FDA-Public Use
  Company Number: US-TEVA-2017-US-826730

PATIENT
  Sex: Male

DRUGS (1)
  1. FENTORA [Suspect]
     Active Substance: FENTANYL CITRATE
     Indication: SPINAL PAIN
     Dosage: 800 MICROGRAM DAILY;
     Route: 002

REACTIONS (1)
  - Product use in unapproved indication [Unknown]
